FAERS Safety Report 9732254 (Version 2)
Quarter: 2013Q4

REPORT INFORMATION
  Report Type: Spontaneous
  Country: US (occurrence: US)
  Receive Date: 20131205
  Receipt Date: 20131227
  Transmission Date: 20140711
  Serious: No
  Sender: FDA-Public Use
  Company Number: US-009507513-1312USA002439

PATIENT
  Age: 74 Year
  Sex: Female
  Weight: 68.48 kg

DRUGS (5)
  1. OXYTROL FOR WOMEN [Suspect]
     Indication: HYPERTONIC BLADDER
     Dosage: 1 DF, Q4D
     Route: 062
     Dates: start: 20131107, end: 20131119
  2. METOPROLOL [Concomitant]
     Indication: INTRACRANIAL ANEURYSM
     Dosage: UNK, UNKNOWN
  3. PRAVASTATIN SODIUM [Concomitant]
     Indication: INTRACRANIAL ANEURYSM
     Dosage: UNK, UNKNOWN
  4. ENALAPRIL MALEATE [Concomitant]
     Indication: INTRACRANIAL ANEURYSM
     Dosage: UNK, UNKNOWN
  5. VITAMINS (UNSPECIFIED) [Concomitant]
     Indication: PRODUCT USED FOR UNKNOWN INDICATION
     Dosage: UNK, UNKNOWN

REACTIONS (1)
  - Drug ineffective [Unknown]
